FAERS Safety Report 8518008-3 (Version None)
Quarter: 2012Q3

REPORT INFORMATION
  Report Type: 
  Country: None (occurrence: None)
  Receive Date: 20120718
  Receipt Date: 20110801
  Transmission Date: 20120928
  Serious: No
  Sender: FDA-Public Use
  Company Number: US-BRISTOL-MYERS SQUIBB COMPANY-15939176

PATIENT
  Age: 67 Year
  Sex: Female

DRUGS (5)
  1. METOPROLOL TARTRATE [Concomitant]
  2. WARFARIN SODIUM [Suspect]
     Indication: PULMONARY THROMBOSIS
     Dosage: 1 DF: 3MG TWO TABLETS ONE DAY, ONE TABLET THE NEXT UNTIL TUESDAY
  3. WARFARIN SODIUM [Suspect]
     Indication: THROMBOSIS
     Dosage: 1 DF: 3MG TWO TABLETS ONE DAY, ONE TABLET THE NEXT UNTIL TUESDAY
  4. CENTRUM [Concomitant]
  5. MULTI-VITAMIN [Concomitant]

REACTIONS (2)
  - INTERNATIONAL NORMALISED RATIO ABNORMAL [None]
  - BLOOD IRON DECREASED [None]
